FAERS Safety Report 10404357 (Version 1)
Quarter: 2014Q1

REPORT INFORMATION
  Report Type: Spontaneous
  Country: US (occurrence: None)
  Receive Date: 20140228
  Receipt Date: 20140228
  Transmission Date: 20141002
  Serious: No
  Sender: FDA-Public Use
  Company Number: 225775 LEO

PATIENT
  Age: 55 Year
  Sex: Female

DRUGS (1)
  1. PICATO (INGENOL MEBUTATE) (0.015 %, GEL) [Suspect]
     Indication: ACTINIC KERATOSIS
     Route: 061
     Dates: start: 20140121, end: 20140123

REACTIONS (9)
  - Application site swelling [None]
  - Burning sensation [None]
  - Application site pain [None]
  - Application site pain [None]
  - Application site erythema [None]
  - Application site exfoliation [None]
  - Lip swelling [None]
  - Cheilitis [None]
  - Cheilitis [None]
